FAERS Safety Report 8291702-8 (Version None)
Quarter: 2012Q2

REPORT INFORMATION
  Report Type: 
  Country: None (occurrence: None)
  Receive Date: 20120417
  Receipt Date: 20120106
  Transmission Date: 20120825
  Serious: No
  Sender: FDA-Public Use
  Company Number: US-ASTRAZENECA-2011SE75926

PATIENT
  Age: 51 Year
  Sex: Female

DRUGS (2)
  1. NEXIUM [Suspect]
     Dosage: EVERY OTHER DAY
     Route: 048
  2. NEXIUM [Suspect]
     Route: 048

REACTIONS (8)
  - SINUSITIS [None]
  - DRUG DOSE OMISSION [None]
  - INFLUENZA [None]
  - MIGRAINE [None]
  - APHAGIA [None]
  - NASOPHARYNGITIS [None]
  - DRUG PRESCRIBING ERROR [None]
  - GASTRIC DISORDER [None]
